FAERS Safety Report 17488203 (Version 1)
Quarter: 2020Q1

REPORT INFORMATION
  Report Type: Spontaneous
  Country: SE (occurrence: SE)
  Receive Date: 20200303
  Receipt Date: 20200303
  Transmission Date: 20200409
  Serious: Yes (Death, Other)
  Sender: FDA-Public Use
  Company Number: SE-AMGEN-SWESP2020034028

PATIENT

DRUGS (5)
  1. URSODEOXYCHOLIC ACID [Concomitant]
     Active Substance: URSODIOL
  2. CORTISONE [Concomitant]
     Active Substance: CORTISONE
  3. ADALIMUMAB [Suspect]
     Active Substance: ADALIMUMAB
     Indication: INFLAMMATORY BOWEL DISEASE
  4. ADALIMUMAB [Suspect]
     Active Substance: ADALIMUMAB
     Indication: CHOLANGITIS SCLEROSING
     Dosage: UNK
     Route: 065
  5. 5-AMINOSALICYLIC ACID [Concomitant]
     Active Substance: MESALAMINE

REACTIONS (8)
  - Cholangitis [Unknown]
  - Death [Fatal]
  - Hypersensitivity [Unknown]
  - Skin disorder [Unknown]
  - Therapy non-responder [Unknown]
  - Adverse event [Unknown]
  - Therapeutic response decreased [Unknown]
  - Infection [Unknown]
